FAERS Safety Report 5350651-5 (Version None)
Quarter: 2007Q2

REPORT INFORMATION
  Report Type: 
  Country: None (occurrence: None)
  Receive Date: 20070608
  Receipt Date: 20070511
  Transmission Date: 20071010
  Serious: No
  Sender: FDA-Public Use
  Company Number: IT-AVENTIS-200712908GDDC

PATIENT
  Age: 40 Year
  Sex: Female

DRUGS (3)
  1. ARAVA [Suspect]
     Indication: RHEUMATOID ARTHRITIS
     Dates: start: 20051101, end: 20070301
  2. NSAID'S [Concomitant]
     Dosage: DOSE: UNK
  3. GLUCOCORTICOIDS [Concomitant]
     Dosage: DOSE: UNK

REACTIONS (1)
  - ABORTION INDUCED [None]
